FAERS Safety Report 10958620 (Version 3)
Quarter: 2015Q4

REPORT INFORMATION
  Report Type: Spontaneous
  Country: FR (occurrence: FR)
  Receive Date: 20150326
  Receipt Date: 20151007
  Transmission Date: 20160304
  Serious: Yes (Hospitalization, Other)
  Sender: FDA-Public Use
  Company Number: FR-ABBVIE-13P-056-1159333-00

PATIENT
  Age: 47 Year
  Sex: Female

DRUGS (3)
  1. HUMIRA [Suspect]
     Active Substance: ADALIMUMAB
     Indication: COLITIS ULCERATIVE
  2. MORPHINE [Suspect]
     Active Substance: MORPHINE
     Indication: HEADACHE
     Route: 065
     Dates: start: 20130912
  3. HUMIRA [Suspect]
     Active Substance: ADALIMUMAB
     Indication: CROHN^S DISEASE
     Route: 058
     Dates: start: 201206

REACTIONS (29)
  - Mastication disorder [Unknown]
  - Speech disorder [Unknown]
  - Feeding disorder [Unknown]
  - Vertigo [Unknown]
  - Meningitis listeria [Unknown]
  - Deafness unilateral [Unknown]
  - Brain abscess [Recovered/Resolved with Sequelae]
  - Restless legs syndrome [Unknown]
  - Hyperacusis [Unknown]
  - Abdominal pain [Unknown]
  - Temperature intolerance [Unknown]
  - Gait disturbance [Unknown]
  - Fatigue [Unknown]
  - Vertigo positional [Unknown]
  - Seizure [Unknown]
  - Hospitalisation [Unknown]
  - Loss of consciousness [Unknown]
  - Altered state of consciousness [Unknown]
  - Balance disorder [Unknown]
  - Ear pain [Unknown]
  - Tooth disorder [Unknown]
  - Monoplegia [Unknown]
  - VIIth nerve paralysis [Recovering/Resolving]
  - Hypoaesthesia [Unknown]
  - Pain [Unknown]
  - Colitis ulcerative [Unknown]
  - Vomiting [Unknown]
  - Paraesthesia [Unknown]
  - Burning sensation [Unknown]

NARRATIVE: CASE EVENT DATE: 20130823
